FAERS Safety Report 13525831 (Version 1)
Quarter: 2017Q2

REPORT INFORMATION
  Report Type: Spontaneous
  Country: FR (occurrence: FR)
  Receive Date: 20170509
  Receipt Date: 20170509
  Transmission Date: 20170830
  Serious: Yes (Hospitalization)
  Sender: FDA-Public Use
  Company Number: FR-ROCHE-1931658

PATIENT
  Age: 92 Year
  Sex: Male

DRUGS (17)
  1. COVERSYL [Concomitant]
     Active Substance: PERINDOPRIL
  2. FLAGYL [Suspect]
     Active Substance: METRONIDAZOLE\METRONIDAZOLE HYDROCHLORIDE
     Indication: INFECTION
     Route: 065
     Dates: start: 20170404, end: 20170418
  3. KARDEGIC [Concomitant]
     Active Substance: ASPIRIN LYSINE
  4. DEXERYL (FRANCE) [Concomitant]
     Active Substance: GLYCERIN\PARAFFIN
  5. UVEDOSE [Concomitant]
     Active Substance: CHOLECALCIFEROL
  6. ROCEPHINE [Suspect]
     Active Substance: CEFTRIAXONE SODIUM
     Indication: INFECTION
     Route: 065
     Dates: start: 20170404, end: 20170418
  7. NOVONORM [Concomitant]
     Active Substance: REPAGLINIDE
  8. FUNGIZONE [Concomitant]
     Active Substance: AMPHOTERICIN B
  9. LAMALINE [Concomitant]
     Active Substance: ACETAMINOPHEN\CAFFEINE\OPIUM
  10. ACTISKENAN [Concomitant]
     Active Substance: MORPHINE SULFATE
  11. FUROSEMIDE. [Concomitant]
     Active Substance: FUROSEMIDE
  12. MACROGOL [Concomitant]
     Active Substance: POLYETHYLENE GLYCOLS
  13. DUROGESIC [Concomitant]
     Active Substance: FENTANYL
  14. DORZOLAMIDE [Concomitant]
     Active Substance: DORZOLAMIDE
  15. MORPHINE [Concomitant]
     Active Substance: MORPHINE
     Route: 065
     Dates: start: 20170403, end: 20170418
  16. CASODEX [Concomitant]
     Active Substance: BICALUTAMIDE
  17. TIMOLOL. [Concomitant]
     Active Substance: TIMOLOL

REACTIONS (1)
  - Cholestasis [Recovering/Resolving]

NARRATIVE: CASE EVENT DATE: 20170406
